FAERS Safety Report 5593517-8 (Version None)
Quarter: 2007Q4

REPORT INFORMATION
  Report Type: 
  Country: None (occurrence: None)
  Receive Date: 20071218
  Receipt Date: 20070702
  Transmission Date: 20080405
  Serious: Yes (Hospitalization, Other)
  Sender: FDA-Public Use
  Company Number: 2006147020

PATIENT
  Age: 55 Year
  Sex: Female
  Weight: 79.8 kg

DRUGS (3)
  1. BEXTRA [Suspect]
     Indication: PAIN
     Dosage: 10 MG (10 MG,1 IN 1 D)
     Dates: start: 20020201
  2. VIOXX [Suspect]
     Indication: ARTHRALGIA
     Dosage: (1-2 TIMES),ORAL
     Route: 048
     Dates: start: 20000122
  3. VIOXX [Suspect]
     Indication: PAIN IN EXTREMITY
     Dosage: (1-2 TIMES),ORAL
     Route: 048
     Dates: start: 20000122

REACTIONS (1)
  - MYOCARDIAL INFARCTION [None]
